FAERS Safety Report 5713198-X (Version None)
Quarter: 2008Q2

REPORT INFORMATION
  Report Type: 
  Country: None (occurrence: None)
  Receive Date: 20080422
  Receipt Date: 19941130
  Transmission Date: 20081010
  Serious: Yes (Death)
  Sender: FDA-Public Use
  Company Number: GB-ROCHE-36698

PATIENT
  Sex: Male

DRUGS (1)
  1. GANCICLOVIR [Suspect]
     Route: 048
     Dates: start: 19940729

REACTIONS (1)
  - DEATH [None]
